FAERS Safety Report 5743636-8 (Version None)
Quarter: 2008Q2

REPORT INFORMATION
  Report Type: 
  Country: None (occurrence: None)
  Receive Date: 20080520
  Receipt Date: 20080509
  Transmission Date: 20081010
  Serious: Yes (Other)
  Sender: FDA-Public Use
  Company Number: GB-JNJFOC-20071205081

PATIENT
  Age: 42 Year
  Sex: Female
  Weight: 65 kg

DRUGS (5)
  1. REMICADE [Suspect]
     Indication: DRUG USE FOR UNKNOWN INDICATION
     Route: 042
  2. ACTONEL [Concomitant]
     Route: 048
  3. LANSOPRAZOLE [Concomitant]
     Route: 048
  4. LISINOPRIL [Concomitant]
  5. PREDNISOLONE [Concomitant]
     Route: 048

REACTIONS (3)
  - LIMB DISCOMFORT [None]
  - MUSCULOSKELETAL STIFFNESS [None]
  - OEDEMA PERIPHERAL [None]
